FAERS Safety Report 6461108-2 (Version None)
Quarter: 2009Q4

REPORT INFORMATION
  Report Type: 
  Country: None (occurrence: None)
  Receive Date: 20091130
  Receipt Date: 20091124
  Transmission Date: 20100525
  Serious: Yes (Hospitalization)
  Sender: FDA-Public Use
  Company Number: B0608832A

PATIENT
  Sex: Male

DRUGS (6)
  1. RYTMONORM [Suspect]
     Indication: DRUG USE FOR UNKNOWN INDICATION
     Dosage: 1U THREE TIMES PER DAY
     Route: 048
     Dates: start: 20091002, end: 20091017
  2. ACENOCOUMAROL [Concomitant]
     Route: 065
  3. PERINDOPRIL [Concomitant]
     Route: 065
  4. INEGY [Concomitant]
     Route: 065
  5. FINASTERIDE [Concomitant]
     Route: 065
  6. ANTICOAGULANT [Concomitant]
     Route: 065

REACTIONS (6)
  - ATAXIA [None]
  - BALANCE DISORDER [None]
  - FALL [None]
  - GAIT DISTURBANCE [None]
  - MUSCULAR WEAKNESS [None]
  - TREMOR [None]
